FAERS Safety Report 14812564 (Version 1)
Quarter: 2018Q2

REPORT INFORMATION
  Report Type: Report from Study
  Country: IE (occurrence: IE)
  Receive Date: 20180425
  Receipt Date: 20180425
  Transmission Date: 20180711
  Serious: Yes (Disabling)
  Sender: FDA-Public Use
  Company Number: IE-AMGEN-IRLSL2018017457

PATIENT
  Age: 70 Year
  Sex: Female
  Weight: 52.16 kg

DRUGS (10)
  1. SONA D1000 [Concomitant]
     Indication: OSTEOPOROSIS
     Dosage: 1000 IU, QD
     Dates: start: 20170518
  2. PROLIA [Suspect]
     Active Substance: DENOSUMAB
     Indication: OSTEOPOROSIS POSTMENOPAUSAL
  3. PREDNISOLONE. [Concomitant]
     Active Substance: PREDNISOLONE
     Indication: OSTEOPOROSIS
     Dosage: 5 MG, QD
     Dates: start: 20150523
  4. PROLIA [Suspect]
     Active Substance: DENOSUMAB
     Indication: OSTEOPOROSIS
     Dosage: 60 MG, Q6MO
     Route: 058
     Dates: start: 20130522, end: 20171117
  5. FOLIC ACID. [Concomitant]
     Active Substance: FOLIC ACID
     Indication: OSTEOPOROSIS
     Dosage: 5 MG, DAILY EXCEPT MONDAY AND TUESDAY
     Dates: start: 20150507
  6. LYRICA [Concomitant]
     Active Substance: PREGABALIN
     Indication: PAIN
     Dosage: 150 MG, BID
     Dates: start: 20111017
  7. METHOTREXATE. [Concomitant]
     Active Substance: METHOTREXATE
     Indication: OSTEOPOROSIS
     Dosage: 2.5 MG, UNK
     Dates: start: 20150507
  8. PLAQUENIL [Concomitant]
     Active Substance: HYDROXYCHLOROQUINE SULFATE
     Indication: PAIN
     Dosage: 200 MG, BID
     Dates: start: 20170406
  9. ARCOXIA [Concomitant]
     Active Substance: ETORICOXIB
     Indication: PAIN
     Dosage: 60 MG, QD
     Dates: start: 20141030
  10. CALCICHEW D3 FORTE [Concomitant]
     Active Substance: CALCIUM\CHOLECALCIFEROL
     Indication: OSTEOPOROSIS
     Dosage: 500/400, BID
     Dates: start: 20170518

REACTIONS (1)
  - Gingivitis [Unknown]
